FAERS Safety Report 20025777 (Version 1)
Quarter: 2021Q4

REPORT INFORMATION
  Report Type: Spontaneous
  Country: CN (occurrence: CN)
  Receive Date: 20211102
  Receipt Date: 20211102
  Transmission Date: 20220303
  Serious: Yes (Hospitalization, Other)
  Sender: FDA-Public Use
  Company Number: CN-NAPPMUNDI-GBR-2021-0092037

PATIENT
  Age: 69 Year
  Sex: Male
  Weight: 44 kg

DRUGS (1)
  1. OXYCODONE HYDROCHLORIDE [Suspect]
     Active Substance: OXYCODONE HYDROCHLORIDE
     Indication: Analgesic therapy
     Dosage: 20 MG, Q12H
     Route: 048
     Dates: start: 20211011, end: 20211015

REACTIONS (4)
  - Neurosis [Recovering/Resolving]
  - Disorganised speech [Recovering/Resolving]
  - Altered state of consciousness [Recovering/Resolving]
  - Toxicity to various agents [Recovering/Resolving]

NARRATIVE: CASE EVENT DATE: 20211015
